FAERS Safety Report 11933760 (Version 1)
Quarter: 2016Q1

REPORT INFORMATION
  Report Type: Spontaneous
  Country: US (occurrence: None)
  Receive Date: 20160120
  Receipt Date: 20160120
  Transmission Date: 20160526
  Serious: Yes (Hospitalization)
  Sender: FDA-Public Use
  Company Number: None

PATIENT
  Age: 55 Year
  Sex: Male

DRUGS (1)
  1. MYCOPHENOLIC 360MG [Suspect]
     Active Substance: MYCOPHENOLIC ACID
     Indication: RENAL DISORDER
     Route: 048
     Dates: start: 20151120

REACTIONS (1)
  - Renal disorder [None]

NARRATIVE: CASE EVENT DATE: 20151221
